FAERS Safety Report 6453670-0 (Version None)
Quarter: 2009Q4

REPORT INFORMATION
  Report Type: 
  Country: None (occurrence: None)
  Receive Date: 20091124
  Receipt Date: 20091112
  Transmission Date: 20100525
  Serious: Yes (Hospitalization)
  Sender: FDA-Public Use
  Company Number: PHHY2009MX44129

PATIENT
  Age: 78 Year
  Sex: Female

DRUGS (1)
  1. DIOVAN HCT [Suspect]
     Indication: HYPERTENSION
     Dosage: 1 TABLET (160/25 MG) PER DAY
     Route: 048
     Dates: start: 20070801

REACTIONS (6)
  - BALANCE DISORDER [None]
  - FALL [None]
  - FEMUR FRACTURE [None]
  - HYPERGLYCAEMIA [None]
  - HYPERTENSION [None]
  - SURGERY [None]
